FAERS Safety Report 16713653 (Version 2)
Quarter: 2019Q3

REPORT INFORMATION
  Report Type: Spontaneous
  Country: US (occurrence: US)
  Receive Date: 20190819
  Receipt Date: 20190921
  Transmission Date: 20191004
  Serious: No
  Sender: FDA-Public Use
  Company Number: US-UNITED THERAPEUTICS-UNT-2019-013573

PATIENT
  Age: 80 Year
  Sex: Male
  Weight: 81.63 kg

DRUGS (4)
  1. TYVASO [Suspect]
     Active Substance: TREPROSTINIL
     Dosage: 96 ?G, UNK
  2. TYVASO [Suspect]
     Active Substance: TREPROSTINIL
     Dosage: 72 ?G, UNK
  3. TYVASO [Suspect]
     Active Substance: TREPROSTINIL
     Dosage: UNK
  4. TYVASO [Suspect]
     Active Substance: TREPROSTINIL
     Indication: PULMONARY ARTERIAL HYPERTENSION
     Dosage: 60-120 ?G, QID
     Dates: start: 20190507

REACTIONS (4)
  - Off label use [Unknown]
  - Nausea [Not Recovered/Not Resolved]
  - Chest discomfort [Recovering/Resolving]
  - Orthopnoea [Recovering/Resolving]

NARRATIVE: CASE EVENT DATE: 2019
